FAERS Safety Report 7921430 (Version 8)
Quarter: 2013Q3

REPORT INFORMATION
  Report Type: Spontaneous
  Country: US (occurrence: US)
  Receive Date: 20110429
  Receipt Date: 20130802
  Transmission Date: 20140515
  Serious: Yes (Hospitalization, Other)
  Sender: FDA-Public Use
  Company Number: US-ASTRAZENECA-2010SE33874

PATIENT
  Age: 72 Year
  Sex: Female
  Weight: 46.3 kg

DRUGS (12)
  1. NEXIUM [Suspect]
     Indication: GASTROOESOPHAGEAL REFLUX DISEASE
     Route: 048
     Dates: start: 20091003
  2. NEXIUM [Suspect]
     Indication: GASTROOESOPHAGEAL REFLUX DISEASE
     Route: 048
  3. SEROQUEL XR [Suspect]
     Indication: DEPRESSION
     Route: 048
     Dates: start: 20101003
  4. SEROQUEL XR [Suspect]
     Indication: DEPRESSION
     Route: 048
  5. PREVACID OTC [Concomitant]
  6. SIMVASTATIN [Concomitant]
  7. DIAZEPAM [Concomitant]
  8. PARNATE [Concomitant]
     Indication: MIGRAINE
  9. PARNATE [Concomitant]
     Indication: HEADACHE
  10. VICODIN [Concomitant]
     Indication: PAIN
  11. KEPPRA [Concomitant]
  12. PROTONIX [Concomitant]

REACTIONS (13)
  - Cerebrovascular accident [Unknown]
  - Hip fracture [Recovering/Resolving]
  - Fall [Recovering/Resolving]
  - Convulsion [Recovered/Resolved]
  - Discomfort [Unknown]
  - Gastrooesophageal reflux disease [Unknown]
  - Chest discomfort [Unknown]
  - Arthralgia [Unknown]
  - Hallucination, auditory [Unknown]
  - Abdominal pain upper [Unknown]
  - Abdominal pain [Unknown]
  - Drug dose omission [Unknown]
  - Drug ineffective [Unknown]
